FAERS Safety Report 15831701 (Version 1)
Quarter: 2019Q1

REPORT INFORMATION
  Report Type: Spontaneous
  Country: US (occurrence: US)
  Receive Date: 20190115
  Receipt Date: 20190115
  Transmission Date: 20190417
  Serious: Yes (Hospitalization)
  Sender: FDA-Public Use
  Company Number: None

PATIENT
  Sex: Female

DRUGS (22)
  1. ELIQUIS [Concomitant]
     Active Substance: APIXABAN
  2. SPIRONOLACT [Concomitant]
     Active Substance: SPIRONOLACTONE
  3. DIGOX [Concomitant]
     Active Substance: DIGOXIN
  4. DOXYCYCL HYC [Concomitant]
  5. METOLAZONE. [Concomitant]
     Active Substance: METOLAZONE
  6. NOVOLOG [Concomitant]
     Active Substance: INSULIN ASPART
  7. RAMIPRIL. [Concomitant]
     Active Substance: RAMIPRIL
  8. CHLORHEX GLU SOIL [Concomitant]
  9. SILDENAFIL. [Suspect]
     Active Substance: SILDENAFIL
     Indication: ESSENTIAL HYPERTENSION
     Route: 048
  10. LEVOTHYROXINE. [Concomitant]
     Active Substance: LEVOTHYROXINE
  11. AZITHROMYCIN ANHYDROUS. [Concomitant]
     Active Substance: AZITHROMYCIN ANHYDROUS
  12. SUPREP BOWEL SOL [Concomitant]
  13. XIIDRA [Concomitant]
     Active Substance: LIFITEGRAST
  14. BUSPIRONE [Concomitant]
     Active Substance: BUSPIRONE HYDROCHLORIDE
  15. PRAMIPEXOLE. [Concomitant]
     Active Substance: PRAMIPEXOLE
  16. GABAPENTIN. [Concomitant]
     Active Substance: GABAPENTIN
  17. SMZ/TMP [Concomitant]
     Active Substance: SULFAMETHOXAZOLE\TRIMETHOPRIM
  18. FUROSEMIDE. [Concomitant]
     Active Substance: FUROSEMIDE
  19. ATORVASTATIN [Concomitant]
     Active Substance: ATORVASTATIN
  20. SERTRALINE [Concomitant]
     Active Substance: SERTRALINE HYDROCHLORIDE
  21. METOPROL SUC [Concomitant]
  22. CALCITRIOL. [Concomitant]
     Active Substance: CALCITRIOL

REACTIONS (2)
  - Oedema [None]
  - Fall [None]
